FAERS Safety Report 11717370 (Version 2)
Quarter: 2016Q3

REPORT INFORMATION
  Report Type: Spontaneous
  Country: CA (occurrence: CA)
  Receive Date: 20151110
  Receipt Date: 20160901
  Transmission Date: 20161109
  Serious: Yes (Other)
  Sender: FDA-Public Use
  Company Number: CA-ROCHE-1657447

PATIENT
  Age: 40 Year
  Sex: Female

DRUGS (3)
  1. XOLAIR [Suspect]
     Active Substance: OMALIZUMAB
     Route: 058
     Dates: start: 20131211
  2. XOLAIR [Suspect]
     Active Substance: OMALIZUMAB
     Indication: ASTHMA
     Route: 058
     Dates: start: 20131020
  3. XOLAIR [Suspect]
     Active Substance: OMALIZUMAB
     Route: 058
     Dates: start: 20131120

REACTIONS (7)
  - Dyspnoea [Unknown]
  - Nausea [Unknown]
  - Stress [Unknown]
  - Sensitivity to weather change [Unknown]
  - Dizziness [Unknown]
  - Cellulitis [Unknown]
  - Anxiety [Unknown]

NARRATIVE: CASE EVENT DATE: 20131211
